FAERS Safety Report 5390549-X (Version None)
Quarter: 2007Q3

REPORT INFORMATION
  Report Type: 
  Country: None (occurrence: None)
  Receive Date: 20070718
  Receipt Date: 20060801
  Transmission Date: 20080115
  Serious: No
  Sender: FDA-Public Use
  Company Number: US-KINGPHARMUSA00001-K200601001

PATIENT

DRUGS (4)
  1. LEVOXYL [Suspect]
     Indication: HYPOTHYROIDISM
     Dosage: 100 MCG, QD
     Route: 048
     Dates: start: 20060621, end: 20060725
  2. LEVOXYL [Suspect]
     Dosage: 125 MCG, QD
     Route: 048
     Dates: start: 20060726, end: 20060701
  3. ACIPHEX [Concomitant]
     Dosage: UNK, PRN
     Route: 048
  4. ZIAC [Concomitant]
     Dosage: UNK, UNK
     Route: 048

REACTIONS (1)
  - HYPERSENSITIVITY [None]
